FAERS Safety Report 26051228 (Version 2)
Quarter: 2025Q4

REPORT INFORMATION
  Report Type: Report from Study
  Country: US (occurrence: US)
  Receive Date: 20251117
  Receipt Date: 20251124
  Transmission Date: 20260117
  Serious: No
  Sender: ABBVIE
  Company Number: US-ABBVIE-6545955

PATIENT
  Age: 72 Year
  Sex: Male
  Weight: 92 kg

DRUGS (6)
  1. RINVOQ [Suspect]
     Active Substance: UPADACITINIB
     Indication: Dermatitis atopic
     Dosage: FORM STRENGTH: 15 MG
     Route: 048
     Dates: start: 20250915
  2. XCOPRI [Concomitant]
     Active Substance: CENOBAMATE
     Indication: Seizure
  3. Chlorpheniramine maleate. [Concomitant]
     Indication: Hypersensitivity
     Dosage: 4 MILLIGRAM
  4. ELIQUIS [Concomitant]
     Active Substance: APIXABAN
     Indication: Anticoagulant therapy
  5. DILTIAZEM [Concomitant]
     Active Substance: DILTIAZEM
     Indication: Blood pressure measurement
  6. FOLIC ACID [Concomitant]
     Active Substance: FOLIC ACID
     Indication: Vitamin supplementation

REACTIONS (3)
  - Rash papular [Recovered/Resolved]
  - Papule [Recovered/Resolved]
  - Miliaria [Recovered/Resolved]

NARRATIVE: CASE EVENT DATE: 20251105
